FAERS Safety Report 18822669 (Version 8)
Quarter: 2022Q2

REPORT INFORMATION
  Report Type: Report from Study
  Country: US (occurrence: US)
  Receive Date: 20210202
  Receipt Date: 20220401
  Transmission Date: 20220720
  Serious: Yes (Other)
  Sender: FDA-Public Use
  Company Number: NVSC2021US024072

PATIENT
  Sex: Male

DRUGS (3)
  1. ENTRESTO [Suspect]
     Active Substance: SACUBITRIL\VALSARTAN
     Indication: Product used for unknown indication
     Dosage: UNK UNK, BID
     Route: 048
     Dates: start: 202006
  2. PEPCID [Concomitant]
     Active Substance: FAMOTIDINE
     Indication: Gastrooesophageal reflux disease
     Dosage: 40 MG
     Route: 065
  3. PEPCID [Concomitant]
     Active Substance: FAMOTIDINE
     Dosage: 20 MG
     Route: 065

REACTIONS (9)
  - Neoplasm malignant [Unknown]
  - Dyspnoea [Unknown]
  - Weight increased [Unknown]
  - Joint injury [Unknown]
  - Gait disturbance [Unknown]
  - Weight decreased [Unknown]
  - Insomnia [Unknown]
  - Chest pain [Unknown]
  - Asthenia [Unknown]
